FAERS Safety Report 12994460 (Version 1)
Quarter: 2016Q4

REPORT INFORMATION
  Report Type: Spontaneous
  Country: US (occurrence: US)
  Receive Date: 20161202
  Receipt Date: 20161202
  Transmission Date: 20170207
  Serious: Yes (Other)
  Sender: FDA-Public Use
  Company Number: US-FRESENIUS KABI-FK201609347

PATIENT
  Age: 26 Year
  Sex: Female

DRUGS (2)
  1. ETOPOSIDE (MANUFACTURER UNKNOWN) [Suspect]
     Active Substance: ETOPOSIDE
     Indication: CARCINOID TUMOUR PULMONARY
     Route: 065
  2. CISPLATIN (MANUFACTURER UNKNOWN) [Suspect]
     Active Substance: CISPLATIN
     Indication: CARCINOID TUMOUR PULMONARY
     Route: 065

REACTIONS (3)
  - Pancytopenia [Unknown]
  - Gastrointestinal disorder [Unknown]
  - Fatigue [Unknown]
